FAERS Safety Report 6155071-1 (Version None)
Quarter: 2009Q2

REPORT INFORMATION
  Report Type: 
  Country: None (occurrence: None)
  Receive Date: 20090410
  Receipt Date: 20090406
  Transmission Date: 20091009
  Serious: Yes (Other)
  Sender: FDA-Public Use
  Company Number: WAES0802USA02299

PATIENT
  Age: 71 Year
  Sex: Female

DRUGS (5)
  1. FOSAMAX [Suspect]
     Indication: OSTEOPOROSIS
     Dosage: 35 MG/WKY PO
     Route: 048
     Dates: start: 20070608, end: 20070616
  2. CARCIOROL [Concomitant]
  3. LOBU [Concomitant]
  4. MUCOSTA [Concomitant]
  5. OPALMON [Concomitant]

REACTIONS (1)
  - HYPERTENSION [None]
